FAERS Safety Report 16305337 (Version 2)
Quarter: 2019Q2

REPORT INFORMATION
  Report Type: Spontaneous
  Country: None (occurrence: US)
  Receive Date: 20190513
  Receipt Date: 20190621
  Transmission Date: 20190711
  Serious: No
  Sender: FDA-Public Use
  Company Number: US-BIOGEN-2014BI100625

PATIENT
  Sex: Female

DRUGS (7)
  1. TYSABRI [Suspect]
     Active Substance: NATALIZUMAB
     Indication: MULTIPLE SCLEROSIS
     Route: 042
  2. TYSABRI [Suspect]
     Active Substance: NATALIZUMAB
     Route: 042
     Dates: start: 20120119, end: 20120606
  3. TYSABRI [Suspect]
     Active Substance: NATALIZUMAB
     Route: 065
     Dates: start: 20120119, end: 20120912
  4. TYSABRI [Suspect]
     Active Substance: NATALIZUMAB
     Route: 065
     Dates: start: 20090805, end: 20110725
  5. TYSABRI [Suspect]
     Active Substance: NATALIZUMAB
     Route: 042
     Dates: start: 20141013, end: 20170412
  6. TYSABRI [Suspect]
     Active Substance: NATALIZUMAB
     Route: 042
     Dates: start: 20090805, end: 20110525
  7. TYSABRI [Suspect]
     Active Substance: NATALIZUMAB
     Route: 042
     Dates: start: 20141013, end: 20150202

REACTIONS (25)
  - Dehydration [Not Recovered/Not Resolved]
  - Laboratory test abnormal [Unknown]
  - Fall [Recovered/Resolved]
  - Dyspepsia [Not Recovered/Not Resolved]
  - Multiple sclerosis [Unknown]
  - Gait inability [Recovered/Resolved]
  - Gait disturbance [Not Recovered/Not Resolved]
  - Renal disorder [Unknown]
  - Fear [Not Recovered/Not Resolved]
  - Abdominal discomfort [Not Recovered/Not Resolved]
  - Nasopharyngitis [Recovered/Resolved]
  - Speech disorder [Unknown]
  - Malaise [Not Recovered/Not Resolved]
  - Weight gain poor [Unknown]
  - Visual impairment [Not Recovered/Not Resolved]
  - Eating disorder [Not Recovered/Not Resolved]
  - Diarrhoea [Not Recovered/Not Resolved]
  - Thyroid disorder [Not Recovered/Not Resolved]
  - Intestinal mass [Not Recovered/Not Resolved]
  - Abdominal pain upper [Not Recovered/Not Resolved]
  - Nausea [Not Recovered/Not Resolved]
  - White blood cell count decreased [Recovered/Resolved]
  - Back pain [Unknown]
  - Pain in extremity [Unknown]
  - Vomiting [Not Recovered/Not Resolved]

NARRATIVE: CASE EVENT DATE: 2014
